FAERS Safety Report 6067457-4 (Version None)
Quarter: 2009Q1

REPORT INFORMATION
  Report Type: 
  Country: None (occurrence: None)
  Receive Date: 20090205
  Receipt Date: 20090129
  Transmission Date: 20090719
  Serious: Yes (Hospitalization)
  Sender: FDA-Public Use
  Company Number: PHHO2007MX12612

PATIENT
  Age: 58 Year
  Sex: Female

DRUGS (2)
  1. ZELNORM [Suspect]
     Indication: GASTROOESOPHAGEAL REFLUX DISEASE
     Dosage: 2 TABLETS (6 MG) PER DAY
     Route: 048
     Dates: start: 20060401, end: 20070713
  2. ZELNORM [Suspect]
     Indication: CONSTIPATION

REACTIONS (3)
  - DIVERTICULAR PERFORATION [None]
  - FEELING ABNORMAL [None]
  - PYREXIA [None]
